FAERS Safety Report 19693283 (Version 4)
Quarter: 2021Q3

REPORT INFORMATION
  Report Type: Spontaneous
  Country: JP (occurrence: JP)
  Receive Date: 20210813
  Receipt Date: 20210827
  Transmission Date: 20211014
  Serious: Yes (Other)
  Sender: FDA-Public Use
  Company Number: JP-BRISTOL-MYERS SQUIBB COMPANY-BMS-2021-079245

PATIENT
  Sex: Male

DRUGS (2)
  1. YERVOY [Suspect]
     Active Substance: IPILIMUMAB
     Indication: PRODUCT USED FOR UNKNOWN INDICATION
     Dosage: UNK
     Route: 041
  2. OPDIVO [Suspect]
     Active Substance: NIVOLUMAB
     Indication: PRODUCT USED FOR UNKNOWN INDICATION
     Route: 041

REACTIONS (13)
  - Fatigue [Unknown]
  - Diarrhoea [Unknown]
  - Weight decreased [Unknown]
  - Eyelid ptosis [Unknown]
  - Decreased appetite [Unknown]
  - Visual impairment [Unknown]
  - Dysphagia [Unknown]
  - Paraplegia [Unknown]
  - Feeling abnormal [Unknown]
  - Mental status changes [Unknown]
  - Hypoaesthesia [Unknown]
  - Pruritus [Recovered/Resolved]
  - Fall [Unknown]
